FAERS Safety Report 21145166 (Version 1)
Quarter: 2022Q3

REPORT INFORMATION
  Report Type: Spontaneous
  Country: US (occurrence: US)
  Receive Date: 20220729
  Receipt Date: 20220729
  Transmission Date: 20221026
  Serious: No
  Sender: FDA-Public Use
  Company Number: US-BRISTOL-MYERS SQUIBB COMPANY-2022-081852

PATIENT
  Age: 84 Year
  Sex: Male
  Weight: 97 kg

DRUGS (1)
  1. REVLIMID [Suspect]
     Active Substance: LENALIDOMIDE
     Indication: Chronic lymphocytic leukaemia
     Dosage: 3W, 1W OFF
     Route: 048
     Dates: start: 20220401

REACTIONS (2)
  - Rash [Unknown]
  - Wound [Unknown]
